FAERS Safety Report 4090799 (Version 2)
Quarter: 2014Q3

REPORT INFORMATION
  Report Type: Report from Study
  Country: AU (occurrence: AU)
  Receive Date: 20040218
  Receipt Date: 20140709
  Transmission Date: 20150326
  Serious: Yes (Hospitalization)
  Sender: FDA-Public Use
  Company Number: PHNR2004AU00658

PATIENT
  Age: 36 Year
  Sex: Male

DRUGS (4)
  1. DILANTIN [Suspect]
     Active Substance: PHENYTOIN
     Indication: CONVULSION
     Dosage: UNK
     Dates: start: 1996, end: 200312
  2. CLOZARIL [Suspect]
     Active Substance: CLOZAPINE
     Indication: SCHIZOPHRENIA
     Dosage: 300MG MORNING,200MG AFTER LUNCH PLUS 300MG IN NIGHT (800MG)
     Route: 048
     Dates: start: 19960711, end: 200402
  3. CLOZARIL [Suspect]
     Active Substance: CLOZAPINE
     Dosage: 300 MG, BID
     Route: 048
     Dates: start: 200402
  4. EPILIM [Suspect]
     Active Substance: VALPROATE SODIUM
     Dosage: UNK

REACTIONS (4)
  - Restless legs syndrome [Recovered/Resolved]
  - Convulsion [Recovered/Resolved]
  - Antipsychotic drug level increased [Unknown]
  - Gamma-glutamyltransferase increased [Recovering/Resolving]

NARRATIVE: CASE EVENT DATE: 199607
